FAERS Safety Report 6201189-4 (Version None)
Quarter: 2009Q2

REPORT INFORMATION
  Report Type: 
  Country: None (occurrence: None)
  Receive Date: 20090526
  Receipt Date: 20090521
  Transmission Date: 20091009
  Serious: Yes (Other)
  Sender: FDA-Public Use
  Company Number: GB-JNJFOC-20090504882

PATIENT
  Age: 37 Year
  Sex: Female

DRUGS (7)
  1. OFLOXACIN [Suspect]
     Indication: URINARY TRACT INFECTION
     Route: 048
  2. OFLOXACIN [Suspect]
     Indication: PELVIC PAIN
     Route: 048
  3. CEFACLOR [Concomitant]
     Indication: URINARY TRACT INFECTION
     Route: 048
  4. CHLORPROMAZINE [Concomitant]
     Route: 048
  5. CLOTRIMAZOLE [Concomitant]
     Indication: VAGINAL INFECTION
     Route: 065
  6. AMOXICILLIN AND CLAVULANATE POTASSIUM [Concomitant]
     Indication: URINARY TRACT INFECTION
     Route: 048
  7. AMOXICILLIN AND CLAVULANATE POTASSIUM [Concomitant]
     Indication: PELVIC PAIN
     Route: 048

REACTIONS (2)
  - INSOMNIA [None]
  - PSYCHOMOTOR HYPERACTIVITY [None]
